FAERS Safety Report 4432761-X (Version None)
Quarter: 2004Q3

REPORT INFORMATION
  Report Type: 
  Country: None (occurrence: None)
  Receive Date: 20040721
  Receipt Date: 20040615
  Transmission Date: 20050211
  Serious: Yes (Other)
  Sender: FDA-Public Use
  Company Number: 2004040876

PATIENT
  Sex: 0

DRUGS (1)
  1. RELPAX [Suspect]
     Indication: ILL-DEFINED DISORDER

REACTIONS (3)
  - HYPOAESTHESIA [None]
  - SWELLING FACE [None]
  - SWOLLEN TONGUE [None]
